FAERS Safety Report 25566815 (Version 1)
Quarter: 2025Q3

REPORT INFORMATION
  Report Type: Spontaneous
  Country: US (occurrence: None)
  Receive Date: 20250715
  Receipt Date: 20250715
  Transmission Date: 20251021
  Serious: Yes (Hospitalization)
  Sender: FDA-CTU
  Company Number: None

PATIENT
  Age: 28 Year
  Sex: Female
  Weight: 117 kg

DRUGS (8)
  1. QSYMIA [Suspect]
     Active Substance: PHENTERMINE HYDROCHLORIDE\TOPIRAMATE
     Indication: Weight decreased
     Route: 048
     Dates: start: 20240320, end: 20241127
  2. LEXAPRO [Concomitant]
     Active Substance: ESCITALOPRAM OXALATE
  3. WELLBUTRIN [Concomitant]
     Active Substance: BUPROPION HYDROCHLORIDE
  4. COSENTYX [Concomitant]
     Active Substance: SECUKINUMAB
  5. MONTELUKAST [Concomitant]
     Active Substance: MONTELUKAST
  6. OMEPRAZOLE [Concomitant]
     Active Substance: OMEPRAZOLE
  7. Asestaline [Concomitant]
  8. ZYRTEC [Concomitant]
     Active Substance: CETIRIZINE HYDROCHLORIDE

REACTIONS (5)
  - Abdominal pain [None]
  - Blood test abnormal [None]
  - Gallbladder disorder [None]
  - Bile duct stone [None]
  - Surgical procedure repeated [None]

NARRATIVE: CASE EVENT DATE: 20241202
